FAERS Safety Report 19276769 (Version 1)
Quarter: 2021Q2

REPORT INFORMATION
  Report Type: Spontaneous
  Country: CN (occurrence: CN)
  Receive Date: 20210519
  Receipt Date: 20210519
  Transmission Date: 20210717
  Serious: Yes (Other)
  Sender: FDA-Public Use
  Company Number: CN-ORGANON-O2105CHN001330

PATIENT
  Age: 38 Year
  Sex: Female

DRUGS (1)
  1. ORGALUTRAN [Suspect]
     Active Substance: GANIRELIX ACETATE
     Indication: PROPHYLAXIS
     Dosage: 0.25 MILLIGRAM, QD
     Route: 058
     Dates: start: 20210511, end: 20210511

REACTIONS (3)
  - Nausea [Recovering/Resolving]
  - Syncope [Recovering/Resolving]
  - Cold sweat [Recovering/Resolving]

NARRATIVE: CASE EVENT DATE: 20210511
